FAERS Safety Report 8532630-X (Version None)
Quarter: 2012Q3

REPORT INFORMATION
  Report Type: 
  Country: None (occurrence: None)
  Receive Date: 20120724
  Receipt Date: 20120716
  Transmission Date: 20120928
  Serious: Yes (Death, Hospitalization)
  Sender: FDA-Public Use
  Company Number: TW-BRISTOL-MYERS SQUIBB COMPANY-16612657

PATIENT
  Age: 75 Year
  Sex: Male
  Weight: 69 kg

DRUGS (5)
  1. PEMETREXED DISODIUM [Suspect]
     Indication: NON-SMALL CELL LUNG CANCER
     Dosage: LAST DOSE ON 3MAY12
     Route: 042
     Dates: start: 20120119
  2. FOLIC ACID [Concomitant]
     Indication: PROPHYLAXIS
     Dates: start: 20120113, end: 20120507
  3. DEXAMETHASONE [Concomitant]
     Indication: PROPHYLAXIS
     Dates: start: 20120118, end: 20120504
  4. VITAMIN B-12 [Concomitant]
     Indication: PROPHYLAXIS
     Dates: start: 20120119, end: 20120322
  5. CISPLATIN [Suspect]
     Indication: NON-SMALL CELL LUNG CANCER
     Dosage: LAST DOSE ON 3MAY12
     Route: 042
     Dates: start: 20120119

REACTIONS (3)
  - PNEUMONIA [None]
  - RENAL FAILURE ACUTE [None]
  - RESPIRATORY FAILURE [None]
